FAERS Safety Report 12306543 (Version 1)
Quarter: 2016Q2

REPORT INFORMATION
  Report Type: Spontaneous
  Country: JP (occurrence: JP)
  Receive Date: 20160426
  Receipt Date: 20160426
  Transmission Date: 20160815
  Serious: Yes (Disabling)
  Sender: FDA-Public Use
  Company Number: JP-NOVOPROD-488286

PATIENT
  Age: 25 Year
  Sex: Male

DRUGS (1)
  1. NORDITROPIN [Suspect]
     Active Substance: SOMATROPIN
     Indication: CHONDRODYSTROPHY
     Dosage: 24 IU (THERAPY FOR 2 YEARS)
     Route: 058
     Dates: start: 1997

REACTIONS (1)
  - Spinal column stenosis [Not Recovered/Not Resolved]
